FAERS Safety Report 8379715-9 (Version None)
Quarter: 2012Q1

REPORT INFORMATION
  Report Type: 
  Country: None (occurrence: None)
  Receive Date: 20120323
  Receipt Date: 20110323
  Transmission Date: 20120608
  Serious: Yes (Hospitalization)
  Sender: FDA-Public Use
  Company Number: 163-21880-11032698

PATIENT
  Age: 60 Year
  Sex: Female

DRUGS (2)
  1. REVLIMID [Suspect]
     Indication: MULTIPLE MYELOMA
     Dosage: 25 MG, 1 IN 1 D, PO ; 10 MG, DAILY FOR 21 DAYS, PO
     Route: 048
     Dates: start: 20101001
  2. REVLIMID [Suspect]
     Indication: MULTIPLE MYELOMA
     Dosage: 25 MG, 1 IN 1 D, PO ; 10 MG, DAILY FOR 21 DAYS, PO
     Route: 048
     Dates: start: 20090301

REACTIONS (2)
  - BLOOD POTASSIUM DECREASED [None]
  - CHEST PAIN [None]
